FAERS Safety Report 9422364 (Version 2)
Quarter: 2013Q3

REPORT INFORMATION
  Report Type: Report from Study
  Country: JP (occurrence: JP)
  Receive Date: 20130726
  Receipt Date: 20130909
  Transmission Date: 20140515
  Serious: Yes (Other)
  Sender: FDA-Public Use
  Company Number: JP-GENZYME-THYM-1003927

PATIENT
  Age: 14 Year
  Sex: Male
  Weight: 49.4 kg

DRUGS (7)
  1. THYMOGLOBULIN [Suspect]
     Indication: BONE MARROW CONDITIONING REGIMEN
     Dosage: 61 MG, QD (ON 24-FEB-2012: ADMINISTERED OVER 5 HOURS; ON 25-FEB-2012: ADMINISTERED OVER 6 HOURS))
     Route: 065
     Dates: start: 20120224, end: 20120227
  2. FLUDARA [Concomitant]
     Indication: MYELODYSPLASTIC SYNDROME
     Dosage: UNK
     Route: 065
     Dates: start: 20120224, end: 20120227
  3. KYTRIL [Concomitant]
     Indication: MYELODYSPLASTIC SYNDROME
     Dosage: UNK
     Route: 065
     Dates: start: 20120224, end: 20120227
  4. SOLU-MEDROL [Concomitant]
     Indication: PROPHYLAXIS
     Dosage: UNK
     Route: 065
     Dates: start: 20120224, end: 20120227
  5. CHLOR-TRIMETON [Concomitant]
     Indication: PROPHYLAXIS
     Dosage: UNK
     Route: 065
     Dates: start: 20120224, end: 20120227
  6. ENDOXAN [Concomitant]
     Indication: MYELODYSPLASTIC SYNDROME
     Dosage: UNK
     Route: 065
     Dates: start: 20120224, end: 20120227
  7. UROMITEXAN [Concomitant]
     Indication: PROPHYLAXIS
     Dosage: UNK
     Route: 065
     Dates: start: 20120224, end: 20120227

REACTIONS (1)
  - Chronic graft versus host disease [Unknown]
